FAERS Safety Report 11846804 (Version 1)
Quarter: 2015Q4

REPORT INFORMATION
  Report Type: Spontaneous
  Country: IT (occurrence: IT)
  Receive Date: 20151217
  Receipt Date: 20151217
  Transmission Date: 20160305
  Serious: Yes (Hospitalization)
  Sender: FDA-Public Use
  Company Number: IT-SA-2015SA211625

PATIENT
  Age: 90 Year
  Sex: Female

DRUGS (6)
  1. LANTUS [Suspect]
     Active Substance: INSULIN GLARGINE
     Indication: DIABETES MELLITUS
     Route: 065
     Dates: start: 20150101, end: 20150617
  2. CARDIOASPIRIN [Concomitant]
     Active Substance: ASPIRIN
     Dosage: 100MG
  3. LASIX [Concomitant]
     Active Substance: FUROSEMIDE
     Dosage: 25MG
  4. NORVASC [Concomitant]
     Active Substance: AMLODIPINE BESYLATE
     Dosage: 5MG
  5. HUMALOG [Suspect]
     Active Substance: INSULIN LISPRO
     Indication: DIABETES MELLITUS
     Dosage: DOSE:60 UNIT(S)
     Route: 058
     Dates: start: 20150101, end: 20150617
  6. DILATREND [Concomitant]
     Active Substance: CARVEDILOL
     Dosage: 6.25?MG TABLETS

REACTIONS (2)
  - Hypoglycaemia [Unknown]
  - Balance disorder [Unknown]

NARRATIVE: CASE EVENT DATE: 20150617
